FAERS Safety Report 7187246-7 (Version None)
Quarter: 2010Q4

REPORT INFORMATION
  Report Type: 
  Country: None (occurrence: None)
  Receive Date: 20101222
  Receipt Date: 20101213
  Transmission Date: 20110411
  Serious: Yes (Hospitalization, Other)
  Sender: FDA-Public Use
  Company Number: US-ELI_LILLY_AND_COMPANY-US201004008095

PATIENT
  Sex: Female
  Weight: 63.492 kg

DRUGS (12)
  1. FORTEO [Suspect]
     Indication: OSTEOPOROSIS
     Dosage: 20 UG, DAILY (1/D)
     Route: 058
     Dates: start: 20100513
  2. FORTEO [Suspect]
  3. FORTEO [Suspect]
     Dosage: 20 UG, DAILY (1/D)
  4. LEXAPRO [Concomitant]
     Dosage: 20 MG, UNK
  5. SIMVASTATIN [Concomitant]
     Dosage: 20 MG, UNK
  6. FISH OIL [Concomitant]
  7. MULTI-VITAMIN [Concomitant]
  8. VITAMIN D [Concomitant]
     Dosage: 2000 U, DAILY (1/D)
  9. CALCIUM [Concomitant]
     Dosage: 800 D/F, DAILY (1/D)
  10. ASPIRIN [Concomitant]
  11. JUICE PLUS [Concomitant]
  12. LIPITOR [Concomitant]
     Dosage: UNK, UNKNOWN
     Route: 065

REACTIONS (4)
  - FALL [None]
  - FEMORAL NECK FRACTURE [None]
  - INJECTION SITE HAEMATOMA [None]
  - ULNA FRACTURE [None]
